FAERS Safety Report 6568052-0 (Version None)
Quarter: 2010Q1

REPORT INFORMATION
  Report Type: 
  Country: None (occurrence: None)
  Receive Date: 20100203
  Receipt Date: 20100121
  Transmission Date: 20100710
  Serious: Yes (Other)
  Sender: FDA-Public Use
  Company Number: GR-ELI_LILLY_AND_COMPANY-GR201001004292

PATIENT
  Age: 50 Year
  Sex: Male

DRUGS (4)
  1. ZYPREXA [Suspect]
     Indication: BIPOLAR I DISORDER
     Dosage: 5 MG, DAILY (1/D)
     Route: 065
     Dates: start: 20080101, end: 20090101
  2. LAMICTIN [Concomitant]
     Indication: BIPOLAR I DISORDER
     Dosage: 200 MG, DAILY (1/D)
     Route: 048
  3. CENTRAC [Concomitant]
     Indication: BIPOLAR I DISORDER
     Dosage: UNK UNK, DAILY (1/D)
     Route: 048
  4. ALCOHOL [Concomitant]
     Dates: start: 20090101

REACTIONS (1)
  - CARDIOMEGALY [None]
